FAERS Safety Report 5586551-5 (Version None)
Quarter: 2008Q1

REPORT INFORMATION
  Report Type: 
  Country: None (occurrence: None)
  Receive Date: 20080110
  Receipt Date: 20080103
  Transmission Date: 20080703
  Serious: Yes (Other)
  Sender: FDA-Public Use
  Company Number: IE-JNJFOC-20071205783

PATIENT
  Age: 37 Year
  Sex: Female

DRUGS (5)
  1. REMICADE [Suspect]
     Indication: CROHN'S DISEASE
     Dosage: ADVERSE EVENT OCCURRED 2 YEARS AFTER INITIATING THERAPY WITH INFLIXIMAB.
     Route: 042
  2. AZATHIOPRINE [Concomitant]
     Route: 048
  3. MESALAMINE [Concomitant]
     Route: 048
  4. CALCIUM GLUCONATE [Concomitant]
     Route: 048
  5. IRON [Concomitant]
     Route: 048

REACTIONS (1)
  - MYCOBACTERIUM MARINUM INFECTION [None]
